FAERS Safety Report 8282348-6 (Version None)
Quarter: 2012Q2

REPORT INFORMATION
  Report Type: 
  Country: None (occurrence: None)
  Receive Date: 20120413
  Receipt Date: 20120410
  Transmission Date: 20120825
  Serious: Yes (Life-Threatening)
  Sender: FDA-Public Use
  Company Number: US-JNJFOC-20120404595

PATIENT
  Age: 27 Year
  Sex: Male

DRUGS (2)
  1. BENZODIAZEPINE NOS [Suspect]
     Indication: PRODUCT USED FOR UNKNOWN INDICATION
     Route: 065
  2. DURAGESIC-100 [Suspect]
     Indication: PAIN
     Route: 062

REACTIONS (11)
  - WRONG TECHNIQUE IN DRUG USAGE PROCESS [None]
  - DRUG DIVERSION [None]
  - DRUG INEFFECTIVE [None]
  - UNRESPONSIVE TO STIMULI [None]
  - TOXICITY TO VARIOUS AGENTS [None]
  - OXYGEN SATURATION DECREASED [None]
  - SOMNOLENCE [None]
  - CONFUSIONAL STATE [None]
  - ENCEPHALOPATHY [None]
  - AMNESIA [None]
  - INTENTIONAL DRUG MISUSE [None]
